FAERS Safety Report 4347880-6 (Version None)
Quarter: 2004Q2

REPORT INFORMATION
  Report Type: 
  Country: None (occurrence: None)
  Receive Date: 20040426
  Receipt Date: 20040426
  Transmission Date: 20050107
  Serious: No
  Sender: FDA-Public Use
  Company Number: None

PATIENT
  Age: 57 Year
  Sex: Male
  Weight: 116.1208 kg

DRUGS (1)
  1. AVINZA [Suspect]
     Indication: PAIN
     Dosage: 90 MG QD ORAL
     Route: 048
     Dates: start: 20030101, end: 20040427

REACTIONS (1)
  - DRUG WITHDRAWAL SYNDROME [None]
